FAERS Safety Report 7492269-4 (Version None)
Quarter: 2011Q2

REPORT INFORMATION
  Report Type: 
  Country: None (occurrence: None)
  Receive Date: 20110519
  Receipt Date: 20101220
  Transmission Date: 20111010
  Serious: No
  Sender: FDA-Public Use
  Company Number: US-NOVEN-ALL1-2010-06537

PATIENT
  Sex: Female
  Weight: 29 kg

DRUGS (6)
  1. MIRTAZAPINE [Concomitant]
     Dosage: UNK
     Dates: start: 20100501
  2. RISPERDAL [Concomitant]
     Dosage: UNK
     Dates: start: 20090101
  3. RISPERDAL [Concomitant]
     Dosage: UNK
     Dates: start: 20090101
  4. DAYTRANA [Suspect]
     Indication: ATTENTION DEFICIT/HYPERACTIVITY DISORDER
     Dosage: 10 MG, 1X/DAY:QD
     Route: 062
     Dates: start: 20100501, end: 20101101
  5. DAYTRANA [Suspect]
     Dosage: 30 MG, 1X/DAY:QD
     Route: 062
     Dates: start: 20101101
  6. LORATADINE [Concomitant]
     Dosage: UNK
     Dates: start: 20080101

REACTIONS (6)
  - DECREASED APPETITE [None]
  - ANTISOCIAL BEHAVIOUR [None]
  - DRUG INEFFECTIVE [None]
  - PRODUCT QUALITY ISSUE [None]
  - BLOOD GLUCOSE INCREASED [None]
  - CONDITION AGGRAVATED [None]
